FAERS Safety Report 9233079 (Version 2)
Quarter: 2013Q2

REPORT INFORMATION
  Report Type: Report from Study
  Country: US (occurrence: US)
  Receive Date: 20130416
  Receipt Date: 20130503
  Transmission Date: 20140414
  Serious: Yes (Hospitalization)
  Sender: FDA-Public Use
  Company Number: PHEH2013US008272

PATIENT
  Age: 17 Year
  Sex: Female

DRUGS (11)
  1. TOBI [Suspect]
     Indication: CYSTIC FIBROSIS
     Dosage: 300 MG, BID
     Dates: start: 200501
  2. PULMOZYME [Concomitant]
     Dosage: UNK UKN, UNK
  3. ALBUTEROL [Concomitant]
     Dosage: UNK UKN, UNK
  4. CAYSTON [Concomitant]
     Dosage: UNK UKN, UNK
  5. ZENPEP [Concomitant]
     Dosage: UNK UKN, UNK
  6. ZYRTEC [Concomitant]
     Dosage: UNK UKN, UNK
  7. PRILOSEC [Concomitant]
     Dosage: UNK UKN, UNK
  8. AZITHROMYCIN [Concomitant]
     Dosage: UNK UKN, UNK
  9. DOXYCYCLINE [Concomitant]
     Dosage: UNK UKN, UNK
  10. FLOVENT [Concomitant]
     Dosage: UNK UKN, UNK
  11. NASONEX [Concomitant]
     Dosage: UNK UKN, UNK

REACTIONS (3)
  - Infective pulmonary exacerbation of cystic fibrosis [Unknown]
  - Oxygen saturation decreased [Unknown]
  - Dyspnoea [Unknown]
